FAERS Safety Report 19953883 (Version 1)
Quarter: 2021Q4

REPORT INFORMATION
  Report Type: Spontaneous
  Country: DE (occurrence: DE)
  Receive Date: 20211013
  Receipt Date: 20211013
  Transmission Date: 20220303
  Serious: Yes (Hospitalization)
  Sender: FDA-Public Use
  Company Number: DE-ADRED-06760-01

PATIENT
  Age: 64 Year
  Sex: Male
  Weight: 82 kg

DRUGS (8)
  1. CISPLATIN [Suspect]
     Active Substance: CISPLATIN
     Indication: Product used for unknown indication
     Dosage: NACH SCHEMA
     Route: 065
  2. DOXORUBICIN [Suspect]
     Active Substance: DOXORUBICIN
     Indication: Product used for unknown indication
     Dosage: NACH SCHEMA
     Route: 065
  3. ETOPOSIDE [Suspect]
     Active Substance: ETOPOSIDE
     Indication: Product used for unknown indication
     Dosage: NACH SCHEMA
     Route: 065
  4. MITOTANE [Suspect]
     Active Substance: MITOTANE
     Indication: Product used for unknown indication
     Dosage: NACH SCHEMA
     Route: 065
  5. HYDROCORTISONE [Concomitant]
     Active Substance: HYDROCORTISONE
     Dosage: 20 MILLIGRAM, BID
  6. SIMVASTATIN [Concomitant]
     Active Substance: SIMVASTATIN
     Dosage: 40 MILLIGRAM, QD
  7. MITOTANE [Concomitant]
     Active Substance: MITOTANE
     Dosage: 500 MILLIGRAM, 4-0-0-0
  8. CANDESARTAN [Concomitant]
     Active Substance: CANDESARTAN
     Dosage: 32 MILLIGRAM, 0.5-0-0-0

REACTIONS (3)
  - General physical health deterioration [Recovering/Resolving]
  - Restlessness [Recovering/Resolving]
  - Dyspnoea [Recovering/Resolving]
